FAERS Safety Report 6015264-0 (Version None)
Quarter: 2008Q4

REPORT INFORMATION
  Report Type: 
  Country: None (occurrence: None)
  Receive Date: 20081222
  Receipt Date: 20081217
  Transmission Date: 20090506
  Serious: Yes (Disabling)
  Sender: FDA-Public Use
  Company Number: IL-NOVOPROD-282442

PATIENT
  Age: 68 Year
  Sex: Male
  Weight: 90 kg

DRUGS (6)
  1. NOVORAPID FLEXPEN [Suspect]
     Indication: TYPE 1 DIABETES MELLITUS
     Dosage: 12 IU BEFORE EACH MEAL (3-4 TIMES DAILY)
  2. ATENOLOL [Concomitant]
     Dosage: 25 MG, QD
  3. ASPIRIN [Concomitant]
     Dosage: 75 MG, QD
  4. SIMVASTATIN [Concomitant]
     Dosage: 40 MG, QD
  5. DISOTHIAZIDE [Concomitant]
     Dosage: 25 MG, QD
  6. RAMIPRIL [Concomitant]
     Dosage: 20 MG, BID

REACTIONS (1)
  - BLINDNESS [None]
